FAERS Safety Report 8465028-3 (Version None)
Quarter: 2012Q2

REPORT INFORMATION
  Report Type: 
  Country: None (occurrence: None)
  Receive Date: 20120626
  Receipt Date: 20120619
  Transmission Date: 20120825
  Serious: Yes (Disabling)
  Sender: FDA-Public Use
  Company Number: JP-ASTRAZENECA-2012SE10998

PATIENT
  Age: 53 Year
  Sex: Male
  Weight: 85 kg

DRUGS (9)
  1. CANDESARTAN CILEXETIL AND HYDROCHLOROTHIAZIDE [Suspect]
     Indication: HYPERTENSION
     Dosage: 1 DF DAILY
     Route: 048
     Dates: start: 20100423
  2. CRESTOR [Concomitant]
     Indication: DYSLIPIDAEMIA
     Route: 048
     Dates: start: 20100325
  3. NARCARICIN [Concomitant]
     Route: 048
     Dates: end: 20100423
  4. BEZATOL [Concomitant]
     Route: 048
     Dates: end: 20100423
  5. ALLOPURINOL [Concomitant]
     Route: 048
     Dates: start: 20100708, end: 20100905
  6. AMLODIPINE [Concomitant]
     Indication: HYPERTENSION
     Route: 048
     Dates: start: 20100311
  7. EPADEL [Concomitant]
     Indication: DYSLIPIDAEMIA
     Route: 048
     Dates: start: 20091110
  8. URINORM [Concomitant]
     Indication: HYPERURICAEMIA
     Route: 048
     Dates: start: 20100906
  9. ALLOPURINOL [Concomitant]
     Indication: HYPERURICAEMIA
     Route: 048
     Dates: start: 20091124, end: 20100707

REACTIONS (3)
  - LOSS OF CONSCIOUSNESS [None]
  - HYPERURICAEMIA [None]
  - CONVULSION [None]
